FAERS Safety Report 25448089 (Version 3)
Quarter: 2025Q3

REPORT INFORMATION
  Report Type: Spontaneous
  Country: CN (occurrence: CN)
  Receive Date: 20250617
  Receipt Date: 20250715
  Transmission Date: 20251020
  Serious: Yes (Other)
  Sender: ELI LILLY AND COMPANY
  Company Number: CN-ELI_LILLY_AND_COMPANY-CN202505018651

PATIENT
  Age: 33 Year
  Sex: Female
  Weight: 41 kg

DRUGS (12)
  1. MOUNJARO [Suspect]
     Active Substance: TIRZEPATIDE
     Indication: Weight control
     Dosage: 2.5 MG, WEEKLY (1/W)
     Route: 058
     Dates: start: 202504
  2. MOUNJARO [Suspect]
     Active Substance: TIRZEPATIDE
     Indication: Weight control
     Dosage: 2.5 MG, WEEKLY (1/W)
     Route: 058
     Dates: start: 202504
  3. MOUNJARO [Suspect]
     Active Substance: TIRZEPATIDE
     Indication: Weight control
     Dosage: 2.5 MG, WEEKLY (1/W)
     Route: 058
     Dates: start: 202504
  4. MOUNJARO [Suspect]
     Active Substance: TIRZEPATIDE
     Indication: Weight control
     Dosage: 2.5 MG, WEEKLY (1/W)
     Route: 058
     Dates: start: 202504
  5. MOUNJARO [Suspect]
     Active Substance: TIRZEPATIDE
     Indication: Lipids increased
     Dosage: 2.5 MG, WEEKLY (1/W))(3 INJECTIONS AT ONE TIME)
     Route: 058
     Dates: start: 20250510
  6. MOUNJARO [Suspect]
     Active Substance: TIRZEPATIDE
     Indication: Lipids increased
     Dosage: 2.5 MG, WEEKLY (1/W))(3 INJECTIONS AT ONE TIME)
     Route: 058
     Dates: start: 20250510
  7. MOUNJARO [Suspect]
     Active Substance: TIRZEPATIDE
     Indication: Lipids increased
     Dosage: 2.5 MG, WEEKLY (1/W))(3 INJECTIONS AT ONE TIME)
     Route: 058
     Dates: start: 20250510
  8. MOUNJARO [Suspect]
     Active Substance: TIRZEPATIDE
     Indication: Lipids increased
     Dosage: 2.5 MG, WEEKLY (1/W))(3 INJECTIONS AT ONE TIME)
     Route: 058
     Dates: start: 20250510
  9. MOUNJARO [Suspect]
     Active Substance: TIRZEPATIDE
     Indication: Blood glucose abnormal
  10. MOUNJARO [Suspect]
     Active Substance: TIRZEPATIDE
     Indication: Blood glucose abnormal
  11. MOUNJARO [Suspect]
     Active Substance: TIRZEPATIDE
     Indication: Blood glucose abnormal
  12. MOUNJARO [Suspect]
     Active Substance: TIRZEPATIDE
     Indication: Blood glucose abnormal

REACTIONS (17)
  - Syncope [Unknown]
  - Myalgia [Unknown]
  - Blood glucose increased [Unknown]
  - Extra dose administered [Unknown]
  - Off label use [Unknown]
  - Dyspnoea [Unknown]
  - Blood pressure increased [Unknown]
  - Increased appetite [Unknown]
  - Cardiac discomfort [Unknown]
  - Injection site pain [Unknown]
  - Vomiting [Unknown]
  - Abdominal pain [Unknown]
  - Diarrhoea [Unknown]
  - Dizziness [Unknown]
  - Nausea [Unknown]
  - Abdominal discomfort [Unknown]
  - Suspected counterfeit product [Unknown]

NARRATIVE: CASE EVENT DATE: 20250501
